FAERS Safety Report 25981472 (Version 1)
Quarter: 2025Q4

REPORT INFORMATION
  Report Type: Spontaneous
  Country: US (occurrence: US)
  Receive Date: 20251030
  Receipt Date: 20251030
  Transmission Date: 20260118
  Serious: Yes (Hospitalization)
  Sender: ABBVIE
  Company Number: US-ABBVIE-6525630

PATIENT
  Age: 60 Year
  Sex: Female

DRUGS (1)
  1. SUCRALFATE [Suspect]
     Active Substance: SUCRALFATE
     Indication: Gastrointestinal haemorrhage
     Route: 042

REACTIONS (2)
  - Superficial vein thrombosis [Recovering/Resolving]
  - Incorrect route of product administration [Unknown]
